FAERS Safety Report 6144639-4 (Version None)
Quarter: 2009Q2

REPORT INFORMATION
  Report Type: 
  Country: None (occurrence: None)
  Receive Date: 20090406
  Receipt Date: 20090330
  Transmission Date: 20091009
  Serious: Yes (Hospitalization)
  Sender: FDA-Public Use
  Company Number: A0764875A

PATIENT
  Age: 67 Year
  Sex: Female

DRUGS (11)
  1. FLOLAN [Suspect]
     Indication: PULMONARY HYPERTENSION
     Dosage: 70NGKM UNKNOWN
     Route: 042
  2. TRACLEER [Concomitant]
  3. POTASSIUM CHLORIDE [Concomitant]
  4. DIGOXIN [Concomitant]
  5. SPIRONOLACTONE [Concomitant]
  6. LASIX [Concomitant]
  7. REVATIO [Concomitant]
  8. AMITRIPTYLINE HCL [Concomitant]
  9. NEXIUM [Concomitant]
  10. PREDNISONE [Concomitant]
  11. LIPITOR [Concomitant]

REACTIONS (2)
  - PULMONARY HYPERTENSION [None]
  - SPLENOMEGALY [None]
